FAERS Safety Report 18510807 (Version 1)
Quarter: 2020Q4

REPORT INFORMATION
  Report Type: Spontaneous
  Country: US (occurrence: US)
  Receive Date: 20201116
  Receipt Date: 20201116
  Transmission Date: 20210114
  Serious: Yes (Hospitalization)
  Sender: FDA-Public Use
  Company Number: None

PATIENT
  Age: 41 Year
  Sex: Male

DRUGS (1)
  1. AIMOVIG [Suspect]
     Active Substance: ERENUMAB-AOOE
     Indication: MIGRAINE
     Dosage: ?          QUANTITY:1 INJECTION(S);OTHER FREQUENCY:ONCE A MONTH;?
     Route: 030
     Dates: start: 20201111, end: 20201111

REACTIONS (6)
  - Headache [None]
  - Musculoskeletal stiffness [None]
  - Palpitations [None]
  - Muscle spasms [None]
  - Tachycardia [None]
  - Condition aggravated [None]

NARRATIVE: CASE EVENT DATE: 20201115
